FAERS Safety Report 5361377-6 (Version None)
Quarter: 2007Q2

REPORT INFORMATION
  Report Type: 
  Country: None (occurrence: None)
  Receive Date: 20070612
  Receipt Date: 20070528
  Transmission Date: 20071010
  Serious: Yes (Other)
  Sender: FDA-Public Use
  Company Number: ACO_00348_2007

PATIENT
  Age: 69 Year
  Sex: Female
  Weight: 80 kg

DRUGS (4)
  1. SIRDALUD (SIRDALUD) (NOT SPECIFIED) [Suspect]
     Dosage: (ORAL)
     Route: 048
  2. ATENOLOL [Concomitant]
  3. AMLODIPINE BESYLATE [Concomitant]
  4. LEXOTAN [Concomitant]

REACTIONS (7)
  - ABASIA [None]
  - ACTIVITIES OF DAILY LIVING IMPAIRED [None]
  - CONDITION AGGRAVATED [None]
  - DECREASED APPETITE [None]
  - MUSCLE DISORDER [None]
  - MUSCULAR WEAKNESS [None]
  - ORAL INTAKE REDUCED [None]
